FAERS Safety Report 26112279 (Version 1)
Quarter: 2025Q4

REPORT INFORMATION
  Report Type: Spontaneous
  Country: US (occurrence: None)
  Receive Date: 20251202
  Receipt Date: 20251202
  Transmission Date: 20260118
  Serious: Yes (Hospitalization)
  Sender: FDA-CTU
  Company Number: None

PATIENT
  Age: 30 Month
  Sex: Male
  Weight: 11.6 kg

DRUGS (4)
  1. CARBOPLATIN [Suspect]
     Active Substance: CARBOPLATIN
     Indication: Hypertension
     Dates: end: 20250407
  2. CYCLOPHOSPHAMIDE [Suspect]
     Active Substance: CYCLOPHOSPHAMIDE
     Indication: Hypertension
     Dates: end: 20250411
  3. ETOPOSIDE [Suspect]
     Active Substance: ETOPOSIDE
     Indication: Hypertension
     Dates: end: 20250411
  4. FILGRASTIM [Suspect]
     Active Substance: FILGRASTIM
     Dates: end: 20250419

REACTIONS (6)
  - Hypertensive crisis [None]
  - Denys-Drash syndrome [None]
  - Peritoneal dialysis [None]
  - Oedema [None]
  - Renal failure [None]
  - Wilms^ tumour gene overexpression [None]

NARRATIVE: CASE EVENT DATE: 20250421
